FAERS Safety Report 6152187-0 (Version None)
Quarter: 2009Q2

REPORT INFORMATION
  Report Type: 
  Country: None (occurrence: None)
  Receive Date: 20090410
  Receipt Date: 20080402
  Transmission Date: 20091009
  Serious: No
  Sender: FDA-Public Use
  Company Number: US-ASTRAZENECA-2008UW06574

PATIENT
  Sex: Female

DRUGS (2)
  1. ATENOLOL [Suspect]
     Route: 048
  2. DIURETIC [Concomitant]

REACTIONS (1)
  - BLOOD SODIUM DECREASED [None]
